APPROVED DRUG PRODUCT: ONFI
Active Ingredient: CLOBAZAM
Strength: 10MG
Dosage Form/Route: TABLET;ORAL
Application: N202067 | Product #002 | TE Code: AB
Applicant: LUNDBECK PHARMACEUTICALS LLC
Approved: Oct 21, 2011 | RLD: Yes | RS: No | Type: RX